FAERS Safety Report 12572274 (Version 1)
Quarter: 2016Q3

REPORT INFORMATION
  Report Type: Spontaneous
  Country: IT (occurrence: IT)
  Receive Date: 20160719
  Receipt Date: 20160719
  Transmission Date: 20161109
  Serious: Yes (Other)
  Sender: FDA-Public Use
  Company Number: IT-ABBVIE-16P-083-1679964-00

PATIENT
  Age: 50 Year
  Sex: Female

DRUGS (4)
  1. EMTRICITABINE W/TENOFOVIR [Concomitant]
     Active Substance: EMTRICITABINE\TENOFOVIR DISOPROXIL
     Indication: HIV INFECTION
     Dates: start: 2010
  2. ATAZANAVIR SULFATE [Interacting]
     Active Substance: ATAZANAVIR SULFATE
     Indication: HIV INFECTION
     Route: 048
  3. RITONAVIR. [Suspect]
     Active Substance: RITONAVIR
     Indication: HIV INFECTION
     Route: 048
     Dates: start: 2010
  4. ORLISTAT [Interacting]
     Active Substance: ORLISTAT
     Indication: OBESITY
     Route: 048
     Dates: start: 201506

REACTIONS (3)
  - Drug level decreased [Recovered/Resolved]
  - Virologic failure [Recovered/Resolved]
  - Drug interaction [Recovered/Resolved]
